FAERS Safety Report 20842465 (Version 1)
Quarter: 2022Q2

REPORT INFORMATION
  Report Type: Report from Study
  Country: IN (occurrence: IN)
  Receive Date: 20220518
  Receipt Date: 20220518
  Transmission Date: 20220721
  Serious: Yes (Hospitalization)
  Sender: FDA-Public Use
  Company Number: IN-NOVARTISPH-NVSC2022IN111708

PATIENT
  Age: 57 Year
  Sex: Female

DRUGS (2)
  1. ALPELISIB [Suspect]
     Active Substance: ALPELISIB
     Indication: Breast cancer metastatic
     Dosage: 300 MG, QD
     Route: 065
     Dates: start: 20220422, end: 20220502
  2. ALPELISIB [Suspect]
     Active Substance: ALPELISIB
     Dosage: 300MG + 150MG ON ALTERNATE DAYS
     Route: 065
     Dates: start: 20220503, end: 20220508

REACTIONS (5)
  - Loss of consciousness [Recovered/Resolved]
  - Blood glucose increased [Recovering/Resolving]
  - Feeding disorder [Recovering/Resolving]
  - Fatigue [Recovered/Resolved]
  - Product use issue [Recovered/Resolved]

NARRATIVE: CASE EVENT DATE: 20220502
